FAERS Safety Report 12313008 (Version 1)
Quarter: 2016Q2

REPORT INFORMATION
  Report Type: Spontaneous
  Country: FR (occurrence: FR)
  Receive Date: 20160428
  Receipt Date: 20160428
  Transmission Date: 20160815
  Serious: Yes (Hospitalization, Other)
  Sender: FDA-Public Use
  Company Number: FR-AMGEN-FRASP2016052265

PATIENT
  Sex: Male

DRUGS (1)
  1. PROLIA [Suspect]
     Active Substance: DENOSUMAB
     Indication: OSTEOPOROSIS
     Dosage: 60 MG, UNK
     Route: 065

REACTIONS (4)
  - Lymph gland infection [Unknown]
  - Rheumatoid arthritis [Unknown]
  - Bone density decreased [Not Recovered/Not Resolved]
  - Lymphoma [Unknown]

NARRATIVE: CASE EVENT DATE: 201512
